FAERS Safety Report 13975220 (Version 2)
Quarter: 2017Q4

REPORT INFORMATION
  Report Type: Spontaneous
  Country: FR (occurrence: FR)
  Receive Date: 20170915
  Receipt Date: 20171018
  Transmission Date: 20180321
  Serious: Yes (Other)
  Sender: FDA-Public Use
  Company Number: FR-MERCK KGAA-2026411

PATIENT
  Age: 57 Year
  Sex: Female
  Weight: 73 kg

DRUGS (5)
  1. NOVOTHYROX [Suspect]
     Active Substance: LEVOTHYROXINE SODIUM
     Indication: THYROIDECTOMY
     Route: 048
     Dates: start: 201706
  2. LANTUS [Concomitant]
     Active Substance: INSULIN GLARGINE
  3. AMAREL [Concomitant]
     Active Substance: GLIMEPIRIDE
  4. BIPRETERAX [Concomitant]
     Active Substance: INDAPAMIDE\PERINDOPRIL
  5. METFORMINE [Concomitant]
     Active Substance: METFORMIN HYDROCHLORIDE

REACTIONS (3)
  - Anxiety [Not Recovered/Not Resolved]
  - Diffuse alopecia [Not Recovered/Not Resolved]
  - Mood altered [Not Recovered/Not Resolved]

NARRATIVE: CASE EVENT DATE: 20170801
